FAERS Safety Report 8005576-3 (Version None)
Quarter: 2011Q4

REPORT INFORMATION
  Report Type: 
  Country: None (occurrence: None)
  Receive Date: 20111223
  Receipt Date: 20111220
  Transmission Date: 20120403
  Serious: Yes (Other)
  Sender: FDA-Public Use
  Company Number: JP-PFIZER INC-2011308091

PATIENT
  Sex: Female

DRUGS (2)
  1. HALCION [Suspect]
     Dosage: 0.25 MG, 1X/DAY
  2. AMOBAN [Concomitant]

REACTIONS (1)
  - CARDIAC FAILURE [None]
